FAERS Safety Report 9300343 (Version 3)
Quarter: 2013Q3

REPORT INFORMATION
  Report Type: Report from Study
  Country: US (occurrence: US)
  Receive Date: 20130521
  Receipt Date: 20130702
  Transmission Date: 20140515
  Serious: Yes (Hospitalization)
  Sender: FDA-Public Use
  Company Number: US-PFIZER INC-2013131602

PATIENT
  Age: 55 Year
  Sex: Female
  Weight: 110 kg

DRUGS (6)
  1. BOSUTINIB [Suspect]
     Indication: CHRONIC MYELOID LEUKAEMIA
     Dosage: 400 MG, 1X/DAY
     Route: 048
     Dates: start: 20080424, end: 20130424
  2. ALLOPURINOL [Concomitant]
     Indication: GOUT
     Dosage: 300 MG, UNK
     Route: 048
  3. POTASSIUM CHLORIDE [Concomitant]
     Indication: HYPOKALAEMIA
     Dosage: 20 MEQ, UNK
     Route: 048
     Dates: start: 20101109
  4. FUROSEMIDE [Concomitant]
     Indication: FLUID RETENTION
     Dosage: 40 MG, UNK
     Route: 048
     Dates: start: 20110125
  5. LEVOTHYROXINE [Concomitant]
     Indication: THYROID DISORDER
     Dosage: 100 MG, UNK
     Route: 048
     Dates: start: 2009
  6. LOSARTAN [Concomitant]
     Dosage: 50 MG, 1X/DAY

REACTIONS (5)
  - Atrial fibrillation [Recovered/Resolved]
  - Dyspnoea [Recovered/Resolved]
  - Pleural effusion [Recovered/Resolved]
  - Fluid retention [Recovered/Resolved]
  - Renal failure [Recovered/Resolved]
